FAERS Safety Report 20127409 (Version 1)
Quarter: 2021Q4

REPORT INFORMATION
  Report Type: Report from Study
  Country: IT (occurrence: IT)
  Receive Date: 20211129
  Receipt Date: 20211129
  Transmission Date: 20220303
  Serious: Yes (Other)
  Sender: FDA-Public Use
  Company Number: IT-BRISTOL-MYERS SQUIBB COMPANY-BMS-2021-126873

PATIENT
  Age: 62 Year
  Sex: Female

DRUGS (1)
  1. ABATACEPT [Suspect]
     Active Substance: ABATACEPT
     Indication: Rheumatoid arthritis
     Dosage: 125 MILLIGRAM, QWK
     Route: 050
     Dates: start: 20200227

REACTIONS (2)
  - Diabetes mellitus [Unknown]
  - Fibromyalgia [Unknown]

NARRATIVE: CASE EVENT DATE: 20211124
